FAERS Safety Report 23575066 (Version 4)
Quarter: 2024Q2

REPORT INFORMATION
  Report Type: Spontaneous
  Country: US (occurrence: US)
  Receive Date: 20240228
  Receipt Date: 20240405
  Transmission Date: 20240716
  Serious: No
  Sender: FDA-Public Use
  Company Number: US-SANOFI-01957719

PATIENT
  Age: 23 Year
  Sex: Male

DRUGS (1)
  1. LANTUS SOLOSTAR [Suspect]
     Active Substance: INSULIN GLARGINE
     Indication: Type 2 diabetes mellitus
     Dosage: 11 IU, QD
     Dates: start: 202310

REACTIONS (3)
  - Frustration tolerance decreased [Unknown]
  - Injection site pain [Unknown]
  - Device issue [Unknown]
